FAERS Safety Report 5807516-1 (Version None)
Quarter: 2008Q3

REPORT INFORMATION
  Report Type: 
  Country: None (occurrence: None)
  Receive Date: 20080709
  Receipt Date: 20080709
  Transmission Date: 20090109
  Serious: Yes (Hospitalization)
  Sender: FDA-Public Use
  Company Number: None

PATIENT
  Age: 59 Year
  Sex: Male
  Weight: 84 kg

DRUGS (1)
  1. BENDAMUSTINE [Suspect]
     Indication: NEOPLASM MALIGNANT
     Dosage: 100 MG EVERY DAY IV
     Route: 042
     Dates: start: 20080508, end: 20080510

REACTIONS (1)
  - FEBRILE NEUTROPENIA [None]
